FAERS Safety Report 13036135 (Version 4)
Quarter: 2017Q1

REPORT INFORMATION
  Report Type: Spontaneous
  Country: JP (occurrence: JP)
  Receive Date: 20161216
  Receipt Date: 20170218
  Transmission Date: 20170428
  Serious: Yes (Death, Other)
  Sender: FDA-Public Use
  Company Number: JP-AMGEN-JPNSP2016178830

PATIENT
  Age: 78 Year
  Sex: Female
  Weight: 53.8 kg

DRUGS (12)
  1. ALOXI [Concomitant]
     Active Substance: PALONOSETRON HYDROCHLORIDE
     Indication: PREMEDICATION
     Dosage: 0.75 MG, Q2WEEKS
     Route: 041
     Dates: start: 20160524, end: 20161104
  2. DECADRON [Concomitant]
     Active Substance: DEXAMETHASONE
     Dosage: 4 MG, UNK
     Route: 048
  3. LEVOFOLINATE [Concomitant]
     Active Substance: LEVOLEUCOVORIN CALCIUM
     Indication: COLON CANCER
     Dosage: 250 MG, Q2WEEKS
     Route: 041
     Dates: start: 20160524, end: 20161104
  4. DECADRON [Concomitant]
     Active Substance: DEXAMETHASONE
     Indication: PROPHYLAXIS OF NAUSEA AND VOMITING
     Dosage: 4 MG, UNK
     Route: 048
     Dates: start: 20160524, end: 20160526
  5. LEUCON [Concomitant]
     Indication: NEUTROPHIL COUNT INCREASED
     Dosage: 30 MG, TID
     Route: 048
     Dates: start: 20160524, end: 20161104
  6. VECTIBIX [Suspect]
     Active Substance: PANITUMUMAB
     Indication: COLON CANCER
     Dosage: 280 MG, Q2WK
     Route: 041
     Dates: start: 20160524, end: 20161104
  7. ELPLAT [Suspect]
     Active Substance: OXALIPLATIN
     Indication: COLON CANCER
     Dosage: 100 MG, Q2WEEKS
     Route: 041
     Dates: start: 20160524, end: 20161104
  8. 5-FU [Suspect]
     Active Substance: FLUOROURACIL
     Indication: COLON CANCER
     Dosage: 3000 MG, Q2WEEKS
     Route: 040
     Dates: start: 20160524, end: 20161104
  9. DECADRON [Concomitant]
     Active Substance: DEXAMETHASONE
     Dosage: 4 MG, UNK
     Route: 048
     Dates: start: 20161104, end: 20161106
  10. MINOMYCIN [Concomitant]
     Active Substance: MINOCYCLINE HYDROCHLORIDE
     Indication: PROPHYLAXIS
     Dosage: 200 MG, BID
     Route: 048
     Dates: start: 20160524, end: 20161104
  11. 5-FU [Suspect]
     Active Substance: FLUOROURACIL
     Dosage: 3000 MG, Q2WEEKS
     Route: 041
     Dates: start: 20160524, end: 20161104
  12. DEXART [Concomitant]
     Active Substance: DEXAMETHASONE SODIUM PHOSPHATE
     Indication: PREMEDICATION
     Dosage: 10 MG, Q2WEEKS
     Route: 041
     Dates: start: 20160524, end: 20161104

REACTIONS (1)
  - Interstitial lung disease [Fatal]

NARRATIVE: CASE EVENT DATE: 20161116
